FAERS Safety Report 8771511 (Version 3)
Quarter: 2012Q4

REPORT INFORMATION
  Report Type: 
  Country: JP (occurrence: JP)
  Receive Date: 20120906
  Receipt Date: 20121022
  Transmission Date: 20130627
  Serious: Yes (Death)
  Sender: FDA-Public Use
  Company Number: JP-GLAXOSMITHKLINE-B0828414A

PATIENT
  Age: 67 Year
  Sex: Male
  Weight: 49 kg

DRUGS (13)
  1. HYCAMTIN [Suspect]
     Indication: SMALL CELL LUNG CANCER STAGE UNSPECIFIED
     Dosage: 1.5MGM2 per day
     Route: 042
     Dates: start: 20120709, end: 20120713
  2. GLIMICRON [Concomitant]
     Indication: TYPE 2 DIABETES MELLITUS
     Dosage: 40MG per day
     Route: 048
     Dates: end: 20120720
  3. MICARDIS [Concomitant]
     Indication: HYPERTENSION
     Dosage: 20MG per day
     Route: 048
     Dates: start: 20120713, end: 20120720
  4. TAKEPRON [Concomitant]
     Indication: GASTRITIS
     Dosage: 15MG per day
     Route: 048
     Dates: start: 20110412, end: 20120720
  5. LOBU [Concomitant]
     Indication: CANCER PAIN
     Dosage: 180MG per day
     Route: 048
     Dates: start: 20120713, end: 20120720
  6. MUCOSTA [Concomitant]
     Indication: GASTRITIS
     Dosage: 300MG per day
     Route: 048
     Dates: start: 20110426, end: 20120720
  7. ARGAMATE [Concomitant]
     Indication: HYPERKALAEMIA
     Dosage: 75G per day
     Route: 048
     Dates: start: 20120218, end: 20120720
  8. MYSLEE [Concomitant]
     Indication: INSOMNIA
     Dosage: 10MG per day
     Route: 048
     Dates: start: 20120124, end: 20120720
  9. RIKKUNSHITO [Concomitant]
     Indication: GASTRITIS
     Route: 048
     Dates: start: 20120404, end: 20120720
  10. DECADRON [Concomitant]
     Indication: OEDEMA
     Dosage: 3MG per day
     Route: 048
     Dates: start: 20120511, end: 20120720
  11. ADALAT [Concomitant]
     Indication: HYPERTENSION
     Dosage: 5MG per day
     Route: 048
     Dates: start: 20120713, end: 20120720
  12. SEIBULE [Concomitant]
     Indication: TYPE 2 DIABETES MELLITUS
     Dosage: 150MG per day
     Route: 048
     Dates: start: 20120712, end: 20120720
  13. WARFARIN [Concomitant]
     Indication: DEEP VEIN THROMBOSIS
     Dosage: 2MG per day
     Route: 048
     Dates: start: 20110408, end: 20120720

REACTIONS (1)
  - Febrile neutropenia [Fatal]
